FAERS Safety Report 23150334 (Version 1)
Quarter: 2023Q4

REPORT INFORMATION
  Report Type: Spontaneous
  Country: IE (occurrence: None)
  Receive Date: 20231106
  Receipt Date: 20231106
  Transmission Date: 20240109
  Serious: Yes (Hospitalization)
  Sender: FDA-Public Use
  Company Number: IE-ROCHE-3451328

PATIENT
  Age: 46 Year
  Sex: Female

DRUGS (1)
  1. AVASTIN [Suspect]
     Active Substance: BEVACIZUMAB
     Indication: Brain neoplasm
     Route: 065

REACTIONS (6)
  - Peripheral swelling [Unknown]
  - Pneumonia [Unknown]
  - Infection [Unknown]
  - Ill-defined disorder [Unknown]
  - Visual field defect [Unknown]
  - Off label use [Unknown]
